FAERS Safety Report 17571591 (Version 2)
Quarter: 2020Q2

REPORT INFORMATION
  Report Type: Report from Study
  Country: US (occurrence: US)
  Receive Date: 20200323
  Receipt Date: 20200409
  Transmission Date: 20200713
  Serious: Yes (Hospitalization, Other)
  Sender: FDA-Public Use
  Company Number: US-HORIZON-KRY-0404-2020

PATIENT
  Sex: Male

DRUGS (3)
  1. SOLU-MEDROL [Concomitant]
     Active Substance: METHYLPREDNISOLONE SODIUM SUCCINATE
     Indication: PREMEDICATION
     Route: 042
  2. KRYSTEXXA [Suspect]
     Active Substance: PEGLOTICASE
     Indication: PRODUCT USED FOR UNKNOWN INDICATION
  3. BENADRYL [Concomitant]
     Active Substance: DIPHENHYDRAMINE HYDROCHLORIDE
     Indication: PREMEDICATION
     Route: 042

REACTIONS (9)
  - Chest pain [Unknown]
  - Nausea [Unknown]
  - Pneumonia [Unknown]
  - Stent placement [Unknown]
  - Hypersensitivity [Unknown]
  - Myocardial infarction [Unknown]
  - Blood glucose abnormal [Unknown]
  - Blood magnesium abnormal [Unknown]
  - Dyspnoea [Unknown]
